FAERS Safety Report 8810188 (Version 1)
Quarter: 2012Q4

REPORT INFORMATION
  Report Type: 
  Country: US (occurrence: US)
  Receive Date: 20120926
  Receipt Date: 20120926
  Transmission Date: 20130627
  Serious: No
  Sender: FDA-Public Use
  Company Number: US-009507513-1209USA007422

PATIENT
  Sex: Male

DRUGS (1)
  1. PROPECIA [Suspect]
     Dosage: 1 mg, qd
     Route: 048
     Dates: start: 2006

REACTIONS (2)
  - Emotional disorder [Unknown]
  - Depression [Unknown]
